FAERS Safety Report 5326087-X (Version None)
Quarter: 2007Q2

REPORT INFORMATION
  Report Type: 
  Country: None (occurrence: None)
  Receive Date: 20070510
  Receipt Date: 20070501
  Transmission Date: 20071010
  Serious: Yes (Death)
  Sender: FDA-Public Use
  Company Number: 163-21880-07040094

PATIENT
  Age: 80 Year
  Sex: Female

DRUGS (1)
  1. REVLIMID [Suspect]
     Indication: MULTIPLE MYELOMA
     Dosage: 25 MG, QD X 21 DAYS W/1 WEEK BREAK, ORAL
     Route: 048
     Dates: start: 20070117, end: 20070309

REACTIONS (2)
  - CEREBROVASCULAR ACCIDENT [None]
  - MULTIPLE MYELOMA [None]
